FAERS Safety Report 9641989 (Version 1)
Quarter: 2013Q4

REPORT INFORMATION
  Report Type: Spontaneous
  Country: US (occurrence: None)
  Receive Date: 20131022
  Receipt Date: 20131022
  Transmission Date: 20140711
  Serious: Yes (Hospitalization)
  Sender: FDA-Public Use
  Company Number: 001613617A

PATIENT
  Age: 29 Year
  Sex: Male

DRUGS (4)
  1. PROACTIV EXTRA STRENGTH FORMULA CLEANSER [Suspect]
     Indication: ACNE
     Dosage: DERMAL
     Dates: start: 20130607, end: 20130717
  2. PROACTIV EXTRA STRENGTH TONER [Suspect]
     Indication: ACNE
     Dates: start: 20130607, end: 20130717
  3. PROACTIV EXTRA STRENGTH FORMULA [Suspect]
     Indication: ACNE
     Dosage: DERMAL
     Dates: start: 20130607, end: 20130717
  4. PROACTIV SOLUTION DEEP CLEANSING WASH [Suspect]
     Indication: ACNE
     Dates: start: 20130607, end: 20130717

REACTIONS (2)
  - Dry skin [None]
  - Abscess [None]
